FAERS Safety Report 21821856 (Version 2)
Quarter: 2023Q1

REPORT INFORMATION
  Report Type: Spontaneous
  Country: US (occurrence: US)
  Receive Date: 20230105
  Receipt Date: 20230109
  Transmission Date: 20230418
  Serious: Yes (Other)
  Sender: FDA-Public Use
  Company Number: US-002147023-NVSC2022US301914

PATIENT
  Age: 36 Year
  Sex: Male

DRUGS (7)
  1. OXCARBAZEPINE [Suspect]
     Active Substance: OXCARBAZEPINE
     Indication: Neuritis
     Dosage: 150 MG, Q12H
     Route: 048
  2. SERTRALINE [Concomitant]
     Active Substance: SERTRALINE HYDROCHLORIDE
     Indication: Anxiety
     Dosage: 100 MG, QD
     Route: 065
  3. VALACYCLOVIR HYDROCHLORIDE [Concomitant]
     Active Substance: VALACYCLOVIR HYDROCHLORIDE
     Indication: Herpes zoster
     Dosage: 1 G, Q8H
     Route: 048
  4. GABAPENTIN [Concomitant]
     Active Substance: GABAPENTIN
     Indication: Neuritis
     Dosage: 600 MG, Q8H
     Route: 048
  5. LIDOCAINE [Concomitant]
     Active Substance: LIDOCAINE
     Indication: Oral disorder
     Dosage: VISCOUS (FOR ORAL LESIONS AS NEEDED Q4-6H)
     Route: 065
  6. BACLOFEN [Concomitant]
     Active Substance: BACLOFEN
     Indication: Facial pain
     Dosage: 10 MG, Q8H
     Route: 048
  7. NORTRIPTYLINE [Concomitant]
     Active Substance: NORTRIPTYLINE
     Indication: Facial pain
     Dosage: 25 MG, Q12H
     Route: 048

REACTIONS (4)
  - Angioedema [Recovering/Resolving]
  - Herpes zoster [Recovering/Resolving]
  - Concomitant disease aggravated [Recovering/Resolving]
  - Product use in unapproved indication [Unknown]
